FAERS Safety Report 5381003-X (Version None)
Quarter: 2007Q3

REPORT INFORMATION
  Report Type: 
  Country: None (occurrence: None)
  Receive Date: 20070702
  Receipt Date: 20060926
  Transmission Date: 20080115
  Serious: Yes (Other)
  Sender: FDA-Public Use
  Company Number: PROG00206003158

PATIENT
  Sex: Female

DRUGS (2)
  1. PROMETRIUM [Suspect]
     Indication: ILL-DEFINED DISORDER
     Dosage: 200 MG QD ORAL
     Route: 048
     Dates: start: 20060815, end: 20060815
  2. VIVELLE-DOT [Concomitant]

REACTIONS (1)
  - ANAPHYLACTIC REACTION [None]
